FAERS Safety Report 6601037-4 (Version None)
Quarter: 2010Q1

REPORT INFORMATION
  Report Type: 
  Country: None (occurrence: None)
  Receive Date: 20100225
  Receipt Date: 20100217
  Transmission Date: 20100710
  Serious: Yes (Hospitalization)
  Sender: FDA-Public Use
  Company Number: JP-JNJFOC-20091003519

PATIENT
  Sex: Male
  Weight: 71.7 kg

DRUGS (23)
  1. FENTANYL [Suspect]
     Indication: PROCEDURAL PAIN
     Route: 062
     Dates: start: 20090601, end: 20090615
  2. FENTANYL [Suspect]
     Route: 062
     Dates: start: 20090601, end: 20090615
  3. FENTANYL [Suspect]
     Route: 062
     Dates: start: 20090601, end: 20090615
  4. FENTANYL [Suspect]
     Route: 062
     Dates: start: 20090601, end: 20090615
  5. FENTANYL [Suspect]
     Indication: COMPLEX REGIONAL PAIN SYNDROME
     Route: 062
     Dates: start: 20090601, end: 20090615
  6. FENTANYL [Suspect]
     Route: 062
     Dates: start: 20090601, end: 20090615
  7. FENTANYL [Suspect]
     Route: 062
     Dates: start: 20090601, end: 20090615
  8. FENTANYL [Suspect]
     Route: 062
     Dates: start: 20090601, end: 20090615
  9. FENTANYL [Suspect]
     Indication: POST HERPETIC NEURALGIA
     Route: 062
     Dates: start: 20090601, end: 20090615
  10. FENTANYL [Suspect]
     Route: 062
     Dates: start: 20090601, end: 20090615
  11. FENTANYL [Suspect]
     Route: 062
     Dates: start: 20090601, end: 20090615
  12. FENTANYL [Suspect]
     Route: 062
     Dates: start: 20090601, end: 20090615
  13. TRYPTANOL [Concomitant]
     Indication: PAIN
     Route: 048
  14. MYSLEE [Concomitant]
     Indication: INSOMNIA
     Route: 048
  15. NEUROTROPIN [Concomitant]
     Indication: PAIN
     Dosage: 4 LU
     Route: 048
  16. NORVASC [Concomitant]
     Indication: HYPERTENSION
     Route: 048
  17. DIOVAN [Concomitant]
     Indication: HYPERTENSION
     Route: 048
  18. ASPIRIN [Concomitant]
     Indication: CEREBRAL INFARCTION
     Route: 048
  19. CRESTOR [Concomitant]
     Indication: HYPERLIPIDAEMIA
     Route: 048
  20. TAKEPRON [Concomitant]
     Indication: PROPHYLAXIS AGAINST GASTROINTESTINAL ULCER
     Route: 048
  21. VOLLEY [Concomitant]
     Indication: ONYCHOMYCOSIS
     Route: 003
  22. NAUZELIN [Concomitant]
     Indication: NAUSEA
     Route: 048
  23. SENNOSIDE [Concomitant]
     Indication: CONSTIPATION
     Route: 048

REACTIONS (1)
  - INAPPROPRIATE ANTIDIURETIC HORMONE SECRETION [None]
